FAERS Safety Report 25981341 (Version 2)
Quarter: 2025Q4

REPORT INFORMATION
  Report Type: Spontaneous
  Country: EU (occurrence: EU)
  Receive Date: 20251030
  Receipt Date: 20251113
  Transmission Date: 20260118
  Serious: Yes (Death, Life-Threatening)
  Sender: MERCK SHARP & DOHME LLC
  Company Number: EU-009507513-2344600

PATIENT
  Age: 54 Year
  Sex: Male
  Weight: 68 kg

DRUGS (8)
  1. SOTATERCEPT [Suspect]
     Active Substance: SOTATERCEPT
     Indication: Pulmonary arterial hypertension
     Dosage: TIME INTERVAL: TOTAL: 20 MG
     Route: 058
     Dates: start: 20251016
  2. SOTATERCEPT [Suspect]
     Active Substance: SOTATERCEPT
  3. SOTATERCEPT [Suspect]
     Active Substance: SOTATERCEPT
  4. SOTATERCEPT [Suspect]
     Active Substance: SOTATERCEPT
  5. DABIGATRAN [Suspect]
     Active Substance: DABIGATRAN
     Indication: Deep vein thrombosis
     Dosage: 150 MG/12H, TOTAL DAILY DOSE: 300 MG
     Route: 048
     Dates: start: 20220420, end: 20251020
  6. RIOCIGUAT [Concomitant]
     Active Substance: RIOCIGUAT
     Dosage: 25 MG/8H, TOTAL DAILY DOSE: 75 MG
     Route: 048
     Dates: start: 20220426
  7. SELEXIPAG [Concomitant]
     Active Substance: SELEXIPAG
     Dosage: 1200 MG/12H, TOTAL DAILY DOSE: 2400 MG
     Route: 048
     Dates: start: 20221101
  8. AMBRISENTAN [Concomitant]
     Active Substance: AMBRISENTAN
     Dosage: 10 MG/24H, TOTAL DAILY DOSE: 10 MG
     Route: 048
     Dates: start: 20220426

REACTIONS (3)
  - Cardiac failure chronic [Fatal]
  - Gastrointestinal haemorrhage [Not Recovered/Not Resolved]
  - Epistaxis [Unknown]

NARRATIVE: CASE EVENT DATE: 20251020
